FAERS Safety Report 14160660 (Version 1)
Quarter: 2017Q4

REPORT INFORMATION
  Report Type: Spontaneous
  Country: BR (occurrence: BR)
  Receive Date: 20171105
  Receipt Date: 20171105
  Transmission Date: 20180321
  Serious: Yes (Other)
  Sender: FDA-Public Use
  Company Number: BR-GLENMARK PHARMACEUTICALS-2017GMK029634

PATIENT
  Age: 26 Year
  Sex: Male

DRUGS (6)
  1. KETOCONAZOLE. [Suspect]
     Active Substance: KETOCONAZOLE
     Indication: DERMATOPHYTOSIS
     Dosage: UNK
     Route: 065
  2. TERBINAFINE HCL [Suspect]
     Active Substance: TERBINAFINE HYDROCHLORIDE
     Indication: DERMATOPHYTOSIS
     Dosage: UNK
     Route: 065
  3. VORICONAZOLE. [Suspect]
     Active Substance: VORICONAZOLE
     Indication: DERMATOPHYTOSIS
     Dosage: UNK
     Route: 065
  4. ITRACONAZOLE. [Suspect]
     Active Substance: ITRACONAZOLE
     Indication: DERMATOPHYTOSIS
     Dosage: UNK
     Route: 065
  5. POSACONAZOLE [Suspect]
     Active Substance: POSACONAZOLE
     Indication: DERMATOPHYTOSIS
     Dosage: UNK
     Route: 065
  6. AMPHOTERICIN B. [Suspect]
     Active Substance: AMPHOTERICIN B
     Indication: DERMATOPHYTOSIS
     Dosage: UNK
     Route: 065

REACTIONS (3)
  - Dermatophytosis [Recovered/Resolved]
  - Disease progression [Recovered/Resolved]
  - Therapeutic response decreased [Unknown]
